FAERS Safety Report 9103447 (Version 1)
Quarter: 2013Q1

REPORT INFORMATION
  Report Type: Spontaneous
  Country: US (occurrence: US)
  Receive Date: 20130219
  Receipt Date: 20130219
  Transmission Date: 20140127
  Serious: Yes (Death, Hospitalization)
  Sender: FDA-Public Use
  Company Number: US-GLAXOSMITHKLINE-A1012059A

PATIENT
  Age: 72 Year
  Sex: Male

DRUGS (7)
  1. ADVAIR [Suspect]
     Indication: CHRONIC OBSTRUCTIVE PULMONARY DISEASE
     Dosage: 1PUFF TWICE PER DAY
     Route: 055
  2. FLONASE [Suspect]
     Indication: RHINITIS ALLERGIC
     Dosage: 1SPR PER DAY
     Route: 045
  3. OXYGEN [Concomitant]
  4. BLOOD PRESSURE MEDICATION [Concomitant]
  5. PREDNISONE [Concomitant]
  6. ANTI-CHOLESTEROL MEDICATION [Concomitant]
  7. LASIX [Concomitant]

REACTIONS (1)
  - Pneumonia [Fatal]
